FAERS Safety Report 5469975-6 (Version None)
Quarter: 2007Q3

REPORT INFORMATION
  Report Type: 
  Country: None (occurrence: None)
  Receive Date: 20070927
  Receipt Date: 20070917
  Transmission Date: 20080115
  Serious: Yes (Other)
  Sender: FDA-Public Use
  Company Number: US-PFIZER INC-2006075442

PATIENT
  Sex: Female
  Weight: 108.4 kg

DRUGS (9)
  1. ATORVASTATIN CALCIUM [Suspect]
     Indication: CORONARY ARTERY DISEASE
     Dosage: DAILY DOSE:10MG
     Route: 048
     Dates: start: 20050210, end: 20050309
  2. ATORVASTATIN CALCIUM [Suspect]
     Dosage: DAILY DOSE:10MG
     Route: 048
     Dates: start: 20050310, end: 20060612
  3. HUMALOG [Concomitant]
     Route: 058
  4. NPH INSULIN [Concomitant]
     Route: 058
  5. METFORMIN [Concomitant]
     Route: 048
  6. ROSIGLITAZONE [Concomitant]
     Route: 048
  7. ASPIRIN [Concomitant]
     Route: 048
  8. LISINOPRIL [Concomitant]
     Route: 048
  9. SODIUM CHLORIDE [Concomitant]
     Dosage: TEXT:APPLICATION
     Route: 047

REACTIONS (1)
  - PULMONARY HYPERTENSION [None]
